FAERS Safety Report 9180139 (Version 3)
Quarter: 2013Q4

REPORT INFORMATION
  Report Type: Report from Study
  Country: JP (occurrence: JP)
  Receive Date: 20130321
  Receipt Date: 20131009
  Transmission Date: 20140711
  Serious: Yes (Hospitalization)
  Sender: FDA-Public Use
  Company Number: JP-MERCK-1303JPN007635

PATIENT
  Age: 79 Year
  Sex: Male
  Weight: 52.6 kg

DRUGS (13)
  1. GLACTIV [Suspect]
     Indication: TYPE 2 DIABETES MELLITUS
     Dosage: 50 MG, QD
     Route: 048
     Dates: start: 20100921, end: 20100921
  2. GLACTIV [Suspect]
     Dosage: 100 MG, QD
     Route: 048
     Dates: start: 20100922, end: 20110805
  3. GLACTIV [Suspect]
     Dosage: 50 MG, QD
     Route: 048
     Dates: start: 20110806
  4. PLAVIX [Concomitant]
  5. ANPLAG [Concomitant]
  6. GLUFAST [Concomitant]
     Dosage: 60 MG
     Dates: start: 20100927, end: 20101103
  7. GLUFAST [Concomitant]
     Dosage: 30 MG
     Dates: start: 20100924, end: 20100926
  8. GLUFAST [Concomitant]
     Dosage: 30 MG
     Dates: start: 20120113
  9. MEDET [Concomitant]
     Dosage: UNK
     Dates: start: 20100930
  10. WARFARIN [Concomitant]
     Dosage: UNK
     Dates: start: 20101028, end: 20110607
  11. IRBETAN [Concomitant]
     Dosage: UNK
     Dates: start: 20101025, end: 20110125
  12. BI SIFROL [Concomitant]
     Dosage: UNK
     Dates: end: 20101006
  13. AMLODIPINE [Concomitant]
     Dosage: UNK
     Dates: start: 20120125

REACTIONS (1)
  - Inappropriate antidiuretic hormone secretion [Recovered/Resolved with Sequelae]
